FAERS Safety Report 6756490-2 (Version None)
Quarter: 2010Q2

REPORT INFORMATION
  Report Type: 
  Country: None (occurrence: None)
  Receive Date: 20100604
  Receipt Date: 20100527
  Transmission Date: 20101027
  Serious: Yes (Other)
  Sender: FDA-Public Use
  Company Number: A0862766A

PATIENT
  Age: 40 Year
  Sex: Female

DRUGS (1)
  1. LAMOTRIGINE [Suspect]
     Route: 065
     Dates: start: 20050101

REACTIONS (3)
  - GRANULOCYTOPENIA [None]
  - NEUTROPENIA [None]
  - WHITE BLOOD CELL COUNT DECREASED [None]
